FAERS Safety Report 18569915 (Version 1)
Quarter: 2020Q4

REPORT INFORMATION
  Report Type: Spontaneous
  Country: CN (occurrence: CN)
  Receive Date: 20201202
  Receipt Date: 20201202
  Transmission Date: 20210114
  Serious: Yes (Hospitalization, Other)
  Sender: FDA-Public Use
  Company Number: CN-GLAXOSMITHKLINE-CN2020APC228813

PATIENT
  Age: 38 Year
  Sex: Female

DRUGS (8)
  1. LAMOTRIGINE. [Suspect]
     Active Substance: LAMOTRIGINE
     Dosage: MAINTENANCE DOSE IS 100- 200 MG/D.
  2. DEXAMETHASONE. [Suspect]
     Active Substance: DEXAMETHASONE
     Indication: ERYTHEMA MULTIFORME
     Dosage: 5 MG, QD
     Route: 030
     Dates: end: 20180208
  3. LAMOTRIGINE. [Suspect]
     Active Substance: LAMOTRIGINE
     Indication: EPILEPSY
     Dosage: 25 MG, QD
     Route: 048
     Dates: start: 20171127, end: 20180208
  4. LAMOTRIGINE. [Suspect]
     Active Substance: LAMOTRIGINE
     Dosage: 50 MG, BID
     Route: 048
  5. CETIRIZINE [Suspect]
     Active Substance: CETIRIZINE HYDROCHLORIDE
     Indication: ERYTHEMA MULTIFORME
     Dosage: 10 MG, QD
     Route: 048
     Dates: end: 20180208
  6. LAMOTRIGINE. [Suspect]
     Active Substance: LAMOTRIGINE
     Dosage: INCREASED BY 50-100 MG EVERY 1-2 WEEKS
  7. LORATADINE. [Suspect]
     Active Substance: LORATADINE
     Indication: ERYTHEMA MULTIFORME
     Dosage: 10 MG, QD
     Route: 048
     Dates: end: 20180208
  8. LAMOTRIGINE. [Suspect]
     Active Substance: LAMOTRIGINE
     Dosage: 50 MG, QD
     Route: 048

REACTIONS (14)
  - Erythema multiforme [Recovered/Resolved]
  - Treatment failure [Unknown]
  - Pruritus [Recovered/Resolved]
  - Blister [Recovered/Resolved]
  - Oral mucosa erosion [Recovered/Resolved]
  - Skin necrosis [Recovered/Resolved]
  - Rash papular [Recovered/Resolved]
  - Pyrexia [Recovered/Resolved]
  - Stevens-Johnson syndrome [Recovered/Resolved]
  - Rash [Recovered/Resolved]
  - Erythema [Recovered/Resolved]
  - Eyelid oedema [Recovered/Resolved]
  - Vulvar erosion [Recovered/Resolved]
  - Skin lesion [Recovered/Resolved]

NARRATIVE: CASE EVENT DATE: 20180116
